FAERS Safety Report 5223051-6 (Version None)
Quarter: 2007Q1

REPORT INFORMATION
  Report Type: 
  Country: None (occurrence: None)
  Receive Date: 20070129
  Receipt Date: 20070125
  Transmission Date: 20070707
  Serious: Yes (Hospitalization)
  Sender: FDA-Public Use
  Company Number: FR-MERCK-0611FRA00047

PATIENT
  Age: 83 Year
  Sex: Female

DRUGS (5)
  1. HYZAAR [Suspect]
     Indication: HYPERTENSION
     Route: 048
     Dates: end: 20061009
  2. CELIPROLOL HYDROCHLORIDE [Concomitant]
     Indication: HYPERTENSION
     Route: 048
     Dates: end: 20061009
  3. CARTEOLOL HYDROCHLORIDE [Concomitant]
     Indication: GLAUCOMA
     Route: 047
     Dates: start: 20060201
  4. VENLAFAXINE HYDROCHLORIDE [Concomitant]
     Route: 048
     Dates: start: 20060701, end: 20060803
  5. LATANOPROST [Concomitant]
     Indication: GLAUCOMA
     Route: 047
     Dates: start: 20060201

REACTIONS (2)
  - HAEMARTHROSIS [None]
  - THROMBOCYTOPENIA [None]
